FAERS Safety Report 9702984 (Version 2)
Quarter: 2015Q1

REPORT INFORMATION
  Report Type: Report from Study
  Country: US (occurrence: US)
  Receive Date: 20131122
  Receipt Date: 20150323
  Transmission Date: 20150721
  Serious: Yes (Death, Hospitalization)
  Sender: FDA-Public Use
  Company Number: US-ROCHE-1302666

PATIENT
  Age: 71 Year
  Sex: Male

DRUGS (4)
  1. LISINOPRIL. [Concomitant]
     Active Substance: LISINOPRIL
     Route: 065
  2. IMURAN [Concomitant]
     Active Substance: AZATHIOPRINE
     Route: 065
  3. ECOTRIN [Concomitant]
     Active Substance: ASPIRIN
     Route: 065
  4. RITUXAN [Suspect]
     Active Substance: RITUXIMAB
     Indication: RHEUMATOID ARTHRITIS
     Dosage: THERAPY DATES: /DEC/2006, SEP/2007, 04/AUG/2009
     Route: 042
     Dates: start: 200604

REACTIONS (10)
  - Death [Fatal]
  - Fatigue [Unknown]
  - Oedema [Unknown]
  - Blood pressure increased [Unknown]
  - Paraesthesia [Unknown]
  - Foot deformity [Unknown]
  - Motor dysfunction [Unknown]
  - Vocal cord paralysis [Unknown]
  - Vocal cord disorder [Unknown]
  - Anxiety [Unknown]

NARRATIVE: CASE EVENT DATE: 20131022
